FAERS Safety Report 16296749 (Version 1)
Quarter: 2019Q2

REPORT INFORMATION
  Report Type: Spontaneous
  Country: US (occurrence: US)
  Receive Date: 20190510
  Receipt Date: 20190510
  Transmission Date: 20190711
  Serious: No
  Sender: FDA-Public Use
  Company Number: US-ZYDUS-034952

PATIENT
  Age: 78 Year
  Sex: Female

DRUGS (9)
  1. LISINOPRIL/LISINOPRIL DIHYDRATE [Concomitant]
     Indication: HYPERTENSION
  2. ISOSORBIDE. [Suspect]
     Active Substance: ISOSORBIDE
     Indication: CARDIAC DISORDER
     Route: 048
     Dates: start: 20181125
  3. CLOPIDOGREL [Suspect]
     Active Substance: CLOPIDOGREL BISULFATE
     Indication: CARDIAC DISORDER
     Route: 048
  4. GLYCERYL TRINITRATE [Concomitant]
     Active Substance: NITROGLYCERIN
     Indication: CARDIAC DISORDER
  5. ATORVASTATIN/ATORVASTATIN CALCIUM [Concomitant]
  6. MECLIZINE [Concomitant]
     Active Substance: MECLIZINE HYDROCHLORIDE
     Indication: DIZZINESS
  7. LEVOTHYROXINE/LEVOTHYROXINE SODIUM [Concomitant]
     Indication: THYROID DISORDER
  8. ACETYLSALICYLIC ACID [Concomitant]
     Active Substance: ASPIRIN
     Indication: CARDIAC DISORDER
  9. CARVEDILOL. [Concomitant]
     Active Substance: CARVEDILOL
     Indication: HYPERTENSION

REACTIONS (2)
  - Product use in unapproved indication [Not Recovered/Not Resolved]
  - Haemorrhage [Recovered/Resolved]

NARRATIVE: CASE EVENT DATE: 20181125
